FAERS Safety Report 6943535-X (Version None)
Quarter: 2010Q3

REPORT INFORMATION
  Report Type: 
  Country: None (occurrence: None)
  Receive Date: 20100825
  Receipt Date: 20100825
  Transmission Date: 20110219
  Serious: Yes (Hospitalization)
  Sender: FDA-Public Use
  Company Number: None

PATIENT
  Sex: Male
  Weight: 106.4 kg

DRUGS (2)
  1. CISPLATIN [Suspect]
     Dosage: 342 MG
     Dates: end: 20100329
  2. TAXOL [Suspect]
     Dosage: 685 MG
     Dates: end: 20100329

REACTIONS (3)
  - DYSPNOEA [None]
  - FATIGUE [None]
  - PNEUMONIA [None]
